FAERS Safety Report 7883907-2 (Version None)
Quarter: 2011Q4

REPORT INFORMATION
  Report Type: 
  Country: None (occurrence: None)
  Receive Date: 20111031
  Receipt Date: 20111018
  Transmission Date: 20120403
  Serious: Yes (Other)
  Sender: FDA-Public Use
  Company Number: JP-ACCORD-011078

PATIENT
  Age: 80 Year
  Sex: Female

DRUGS (3)
  1. TACROLIMUS [Suspect]
     Indication: RHEUMATOID ARTHRITIS
     Dosage: 1.50.MG-1.0DAYS
  2. PREDNISOLONE [Suspect]
     Indication: RHEUMATOID ARTHRITIS
     Dosage: 5.00-MG-1.0DAYS
  3. SALAZOSULFAPYRIDINE (SALAZOSULFAPYRIDINE) [Concomitant]

REACTIONS (3)
  - BLOOD LACTATE DEHYDROGENASE INCREASED [None]
  - OFF LABEL USE [None]
  - ORGANISING PNEUMONIA [None]
